FAERS Safety Report 6980397 (Version 3)
Quarter: 2012Q4

REPORT INFORMATION
  Report Type: 
  Country: CA (occurrence: CA)
  Receive Date: 20090429
  Receipt Date: 20121018
  Transmission Date: 20130627
  Serious: Yes (Hospitalization)
  Sender: FDA-Public Use
  Company Number: PHHY2009CA15562

PATIENT
  Sex: Male
  Weight: 70 kg

DRUGS (1)
  1. EXJADE [Suspect]
     Indication: MYELODYSPLASTIC SYNDROME
     Dosage: 1250 mg, UNK
     Route: 048
     Dates: start: 200807

REACTIONS (3)
  - Haemorrhage [Unknown]
  - Diarrhoea [Unknown]
  - Bacterial infection [Unknown]
